FAERS Safety Report 16794375 (Version 1)
Quarter: 2019Q3

REPORT INFORMATION
  Report Type: Report from Study
  Country: IT (occurrence: IT)
  Receive Date: 20190911
  Receipt Date: 20190911
  Transmission Date: 20191005
  Serious: Yes (Hospitalization)
  Sender: FDA-Public Use
  Company Number: IT-TEVA-2019-IT-1103959

PATIENT
  Age: 81 Year
  Sex: Male

DRUGS (9)
  1. LUVION 50 MG COMPRESSE [Suspect]
     Active Substance: CANRENONE
     Dosage: 1 DOSAGE FORMS
     Route: 048
  2. GARDENALE 50 MG COMPRESSE [Concomitant]
     Active Substance: PHENOBARBITAL
     Dosage: 1 DOSAGE FORMS
     Route: 048
  3. CARDURA 4 MG COMPRESSE [Concomitant]
     Dosage: 1 DOSAGE FORM
     Route: 048
  4. GABAPENTIN. [Concomitant]
     Active Substance: GABAPENTIN
     Dosage: 300MG
     Route: 048
  5. TELMISARTAN. [Concomitant]
     Active Substance: TELMISARTAN
     Dosage: 80MG
     Route: 048
  6. TIKLID 250 MG COMPRESSE RIVESTITE [Concomitant]
     Active Substance: TICLOPIDINE HYDROCHLORIDE
     Dosage: 2 DOSAGE FORM
     Route: 048
  7. AMLODIPINE [Suspect]
     Active Substance: AMLODIPINE BESYLATE
     Dosage: 5MG PER DAY
     Route: 048
  8. ATENOLOL. [Concomitant]
     Active Substance: ATENOLOL
     Dosage: 100MG
     Route: 048
  9. LIORESAL 25 MG COMPRESSE [Concomitant]

REACTIONS (3)
  - Hyperkalaemia [Unknown]
  - Hyponatraemia [Unknown]
  - Drug interaction [Unknown]

NARRATIVE: CASE EVENT DATE: 20190621
